FAERS Safety Report 7974141-6 (Version None)
Quarter: 2011Q4

REPORT INFORMATION
  Report Type: 
  Country: None (occurrence: None)
  Receive Date: 20111213
  Receipt Date: 20111209
  Transmission Date: 20120403
  Serious: No
  Sender: FDA-Public Use
  Company Number: US-PFIZER INC-2011301181

PATIENT
  Sex: Female
  Weight: 72.562 kg

DRUGS (3)
  1. CELEBREX [Concomitant]
     Indication: ARTHRITIS
     Dosage: UNK
  2. ADVIL CONGESTION RELIEF [Suspect]
     Indication: SINUS DISORDER
     Dosage: 200/10 MG, 3X/DAY
     Route: 048
     Dates: start: 20111208, end: 20111209
  3. RANITIDINE [Concomitant]
     Indication: ABDOMINAL DISCOMFORT
     Dosage: UNK, 1X/DAY

REACTIONS (1)
  - DRUG INEFFECTIVE [None]
